FAERS Safety Report 10423177 (Version 2)
Quarter: 2014Q3

REPORT INFORMATION
  Report Type: Spontaneous
  Country: AU (occurrence: AU)
  Receive Date: 20140902
  Receipt Date: 20140902
  Transmission Date: 20150326
  Serious: Yes (Other)
  Sender: FDA-Public Use
  Company Number: AU-AMGEN-AUSSP2014064450

PATIENT
  Sex: Female

DRUGS (2)
  1. IRBESARTAN. [Concomitant]
     Active Substance: IRBESARTAN
     Indication: HYPERTENSION
     Dosage: UNK
     Dates: start: 2007
  2. PROLIA [Suspect]
     Active Substance: DENOSUMAB
     Indication: OSTEOPOROSIS POSTMENOPAUSAL
     Dosage: 60 MG, UNK
     Route: 058
     Dates: start: 201407

REACTIONS (5)
  - Palpitations [Not Recovered/Not Resolved]
  - Ventricular extrasystoles [Unknown]
  - Feeling hot [Unknown]
  - Hyperhidrosis [Unknown]
  - Bundle branch block left [Unknown]

NARRATIVE: CASE EVENT DATE: 201407
